FAERS Safety Report 8311302-0 (Version None)
Quarter: 2012Q2

REPORT INFORMATION
  Report Type: 
  Country: None (occurrence: None)
  Receive Date: 20120425
  Receipt Date: 20120415
  Transmission Date: 20120825
  Serious: Yes (Congenital Anomaly, Other)
  Sender: FDA-Public Use
  Company Number: US-VIIV HEALTHCARE LIMITED-A0974838B

PATIENT
  Weight: 1.9 kg

DRUGS (5)
  1. REYATAZ [Suspect]
     Indication: ANTIRETROVIRAL THERAPY
     Dosage: 300MGD PER DAY
     Route: 064
     Dates: start: 20110713, end: 20111027
  2. COMBIVIR [Suspect]
     Indication: ANTIRETROVIRAL THERAPY
     Dosage: 2TAB PER DAY
     Route: 064
     Dates: start: 20111121
  3. NORVIR [Suspect]
     Indication: ANTIRETROVIRAL THERAPY
     Dosage: 100MGD PER DAY
     Route: 064
     Dates: start: 20110713, end: 20111027
  4. TRUVADA [Suspect]
     Indication: ANTIRETROVIRAL THERAPY
     Dosage: 1TAB PER DAY
     Route: 064
     Dates: start: 20110713, end: 20111027
  5. RALTEGRAVIR [Suspect]
     Indication: ANTIRETROVIRAL THERAPY
     Dosage: 800MGD PER DAY
     Route: 064
     Dates: start: 20111121

REACTIONS (2)
  - CONGENITAL FOOT MALFORMATION [None]
  - FOETAL EXPOSURE DURING PREGNANCY [None]
